FAERS Safety Report 19206566 (Version 2)
Quarter: 2021Q2

REPORT INFORMATION
  Report Type: Spontaneous
  Country: FR (occurrence: FR)
  Receive Date: 20210503
  Receipt Date: 20210619
  Transmission Date: 20210717
  Serious: Yes (Hospitalization, Other)
  Sender: FDA-Public Use
  Company Number: FR-ABBVIE-21K-056-3886481-00

PATIENT
  Age: 79 Year
  Sex: Female
  Weight: 75 kg

DRUGS (20)
  1. LAROXYL [Concomitant]
     Active Substance: AMITRIPTYLINE HYDROCHLORIDE
     Indication: PRODUCT USED FOR UNKNOWN INDICATION
  2. NORDIMET [Concomitant]
     Active Substance: METHOTREXATE
     Indication: PRODUCT USED FOR UNKNOWN INDICATION
     Dosage: 20 MG EVERY MONDAY AT NOON
     Route: 058
  3. HYDROCORTISON [Concomitant]
     Active Substance: HYDROCORTISONE
     Dosage: 2 TABLETS IN THE MORNING
     Route: 048
     Dates: start: 2021
  4. BISOCE [Concomitant]
     Active Substance: BISOPROLOL
     Indication: PRODUCT USED FOR UNKNOWN INDICATION
     Dosage: 3 UNIT IN THE MORNING
  5. PANTOPRAZOLE [Concomitant]
     Active Substance: PANTOPRAZOLE
     Indication: PRODUCT USED FOR UNKNOWN INDICATION
     Dosage: 1 TABLET AT NOON
     Route: 048
  6. SPECIAFOLDINE [Concomitant]
     Active Substance: FOLIC ACID
     Indication: PRODUCT USED FOR UNKNOWN INDICATION
  7. METOJECT [Concomitant]
     Active Substance: METHOTREXATE SODIUM
     Indication: PRODUCT USED FOR UNKNOWN INDICATION
  8. LAROXYL [Concomitant]
     Active Substance: AMITRIPTYLINE HYDROCHLORIDE
     Dosage: 0.5 TABLET IN THE EVENING
     Route: 048
  9. FOLIC ACID. [Concomitant]
     Active Substance: FOLIC ACID
     Indication: PRODUCT USED FOR UNKNOWN INDICATION
     Dates: end: 202104
  10. FLUCONAZOLE. [Concomitant]
     Active Substance: FLUCONAZOLE
     Indication: PRODUCT USED FOR UNKNOWN INDICATION
     Dosage: 5 ML AT NOON
     Route: 048
  11. LEVOTHYROX [Concomitant]
     Active Substance: LEVOTHYROXINE
     Indication: PRODUCT USED FOR UNKNOWN INDICATION
     Dosage: 1 UNIT IN THE MORNING
     Dates: end: 2021
  12. LEVOTHYROX [Concomitant]
     Active Substance: LEVOTHYROXINE
     Dosage: 2 TABLETS IN THE MORNING
     Route: 048
     Dates: start: 2021
  13. BISOCE [Concomitant]
     Active Substance: BISOPROLOL
     Dates: start: 202104
  14. XARELTO [Concomitant]
     Active Substance: RIVAROXABAN
     Indication: PRODUCT USED FOR UNKNOWN INDICATION
     Dosage: 1 TABLET IN THE MORNING
     Route: 048
  15. HYDROCORTISON [Concomitant]
     Active Substance: HYDROCORTISONE
     Indication: PRODUCT USED FOR UNKNOWN INDICATION
     Dates: end: 2021
  16. INNOVAIR [Concomitant]
     Active Substance: BECLOMETHASONE DIPROPIONATE\FORMOTEROL
     Indication: PRODUCT USED FOR UNKNOWN INDICATION
     Dosage: 1 PUFF MORNING AND EVENING
  17. PREDNISONE. [Concomitant]
     Active Substance: PREDNISONE
     Indication: PRODUCT USED FOR UNKNOWN INDICATION
     Dates: start: 202104
  18. DOLIPRAN [Concomitant]
     Indication: PRODUCT USED FOR UNKNOWN INDICATION
     Dosage: 2 CAPSULES IF NEEDED, MAX 8 PER 24H EVERY 4H
     Route: 048
  19. RINVOQ [Suspect]
     Active Substance: UPADACITINIB
     Indication: RHEUMATOID ARTHRITIS
     Route: 048
     Dates: start: 20210302, end: 20210422
  20. FOLIC ACID. [Concomitant]
     Active Substance: FOLIC ACID
     Dosage: EVERY MONDAY AND THURSDAY MORNING
     Route: 048
     Dates: start: 20210426

REACTIONS (26)
  - Eructation [Unknown]
  - Lymphadenopathy mediastinal [Unknown]
  - Hyperleukocytosis [Unknown]
  - Cough [Unknown]
  - Pyrexia [Unknown]
  - Hypoxia [Unknown]
  - Intervertebral disc degeneration [Unknown]
  - Anaemia [Unknown]
  - Spondylolisthesis [Recovered/Resolved]
  - Abdominal discomfort [Unknown]
  - Fluid retention [Unknown]
  - Lung disorder [Recovered/Resolved]
  - Dyspnoea [Unknown]
  - Intestinal calcification [Unknown]
  - Respiratory tract infection [Unknown]
  - Pneumocystis jirovecii pneumonia [Unknown]
  - Renal cyst [Unknown]
  - Osteoarthritis [Unknown]
  - Hyponatraemia [Recovered/Resolved]
  - Inflammation [Unknown]
  - Acute respiratory failure [Unknown]
  - Diverticulum intestinal [Unknown]
  - Atrial fibrillation [Recovered/Resolved]
  - Constipation [Unknown]
  - Interstitial lung disease [Recovered/Resolved]
  - Hypoglycaemia [Recovered/Resolved]

NARRATIVE: CASE EVENT DATE: 2021
